FAERS Safety Report 5072797-1 (Version None)
Quarter: 2006Q3

REPORT INFORMATION
  Report Type: 
  Country: None (occurrence: None)
  Receive Date: 20060801
  Receipt Date: 20060628
  Transmission Date: 20061208
  Serious: Yes (Death, Other)
  Sender: FDA-Public Use
  Company Number: EWC020731709

PATIENT
  Age: 25 Year
  Sex: Female

DRUGS (4)
  1. OLANZAPINE [Suspect]
     Indication: PSYCHOTIC DISORDER
     Dosage: SEE IMAGE
     Route: 048
     Dates: start: 20011101, end: 20020109
  2. OLANZAPINE [Suspect]
     Indication: PSYCHOTIC DISORDER
     Dosage: SEE IMAGE
     Route: 048
     Dates: start: 20020110, end: 20020111
  3. DIAZEPAM [Concomitant]
  4. AKINETON [Concomitant]

REACTIONS (14)
  - AGITATION [None]
  - ARRHYTHMIA [None]
  - CARDIOPULMONARY FAILURE [None]
  - DRUG HYPERSENSITIVITY [None]
  - DYSKINESIA [None]
  - DYSPNOEA [None]
  - EXTRAPYRAMIDAL DISORDER [None]
  - EYE DISORDER [None]
  - FOAMING AT MOUTH [None]
  - IDIOSYNCRATIC DRUG REACTION [None]
  - MALAISE [None]
  - NEUROLEPTIC MALIGNANT SYNDROME [None]
  - THERAPEUTIC RESPONSE DECREASED [None]
  - UNRESPONSIVE TO STIMULI [None]
